FAERS Safety Report 13532999 (Version 1)
Quarter: 2017Q2

REPORT INFORMATION
  Report Type: Spontaneous
  Country: US (occurrence: US)
  Receive Date: 20170510
  Receipt Date: 20170510
  Transmission Date: 20170830
  Serious: Yes (Other)
  Sender: FDA-Public Use
  Company Number: US-MYLANLABS-2017M1027984

PATIENT

DRUGS (1)
  1. QUININE [Suspect]
     Active Substance: QUININE
     Dosage: SINGLE DOSE AT THE AGE OF 23 YEARS
     Route: 048

REACTIONS (13)
  - Retinal toxicity [Unknown]
  - Tinnitus [Unknown]
  - Macular dystrophy congenital [Unknown]
  - Retinal pigment epitheliopathy [Unknown]
  - Retinitis pigmentosa [Unknown]
  - Toxicity to various agents [Unknown]
  - Overdose [Unknown]
  - Tunnel vision [Unknown]
  - Blindness [Recovering/Resolving]
  - Retinal disorder [Unknown]
  - Photophobia [Unknown]
  - Optic atrophy [Unknown]
  - Night blindness [Unknown]
